FAERS Safety Report 6964951-6 (Version None)
Quarter: 2010Q3

REPORT INFORMATION
  Report Type: 
  Country: None (occurrence: None)
  Receive Date: 20100903
  Receipt Date: 20100823
  Transmission Date: 20110219
  Serious: Yes (Hospitalization)
  Sender: FDA-Public Use
  Company Number: ES-ELI_LILLY_AND_COMPANY-ES201008006908

PATIENT
  Sex: Female
  Weight: 45 kg

DRUGS (4)
  1. FORTEO [Suspect]
     Indication: OSTEOPOROSIS
     Dosage: 20 UG, DAILY (1/D)
     Route: 058
     Dates: start: 20100501
  2. ZALDIAR [Concomitant]
     Indication: PAIN
     Dosage: UNK, AS NEEDED
     Route: 048
     Dates: start: 20080101
  3. LORAZEPAM [Concomitant]
     Indication: ANXIETY
     Dosage: UNK, 2/D
     Route: 048
     Dates: start: 20080101
  4. CLEXANE [Concomitant]
     Indication: COAGULOPATHY
     Dosage: UNK, DAILY (1/D)
     Route: 048

REACTIONS (2)
  - CELLULITIS [None]
  - DERMATITIS [None]
